FAERS Safety Report 8404361 (Version 3)
Quarter: 2012Q4

REPORT INFORMATION
  Report Type: 
  Country: US (occurrence: US)
  Receive Date: 20120214
  Receipt Date: 20121217
  Transmission Date: 20130627
  Serious: No
  Sender: FDA-Public Use
  Company Number: US-PFIZER INC-2012036246

PATIENT
  Age: 84 Year
  Sex: Female
  Weight: 50.79 kg

DRUGS (2)
  1. PROTONIX [Suspect]
     Indication: ULCER
     Dosage: 40 mg, 1x/day
     Route: 048
     Dates: start: 2004
  2. NORVASC [Concomitant]
     Dosage: UNK

REACTIONS (3)
  - Drug ineffective [Unknown]
  - Hyperchlorhydria [Not Recovered/Not Resolved]
  - Malaise [Not Recovered/Not Resolved]
